FAERS Safety Report 7023952-2 (Version None)
Quarter: 2010Q4

REPORT INFORMATION
  Report Type: 
  Country: None (occurrence: None)
  Receive Date: 20101001
  Receipt Date: 20100917
  Transmission Date: 20110411
  Serious: Yes (Hospitalization)
  Sender: FDA-Public Use
  Company Number: FR-JNJFOC-20100908276

PATIENT
  Sex: Female
  Weight: 50 kg

DRUGS (16)
  1. IXPRIM [Suspect]
     Indication: PAIN
     Route: 048
  2. TOPALGIC [Suspect]
     Indication: PAIN
     Route: 042
  3. CODOLIPRANE [Suspect]
     Indication: PAIN
     Route: 048
  4. MORPHINE HYDROCHLORIDE [Suspect]
     Indication: PAIN
     Route: 042
  5. OXYCODONE HCL [Suspect]
     Indication: PAIN
     Route: 065
  6. TAVANIC [Suspect]
     Indication: PYELONEPHRITIS
     Route: 065
  7. VASTAREL [Concomitant]
  8. CORTANCYL [Concomitant]
  9. PEPDINE [Concomitant]
  10. MOTILIUM [Concomitant]
  11. XANAX [Concomitant]
     Dosage: 0.25
  12. CORDARONE [Concomitant]
     Dosage: 0.5
  13. EVISTA [Concomitant]
  14. SEROPLEX [Concomitant]
     Dosage: 10
  15. ZOPICLONE [Concomitant]
     Dosage: 7.5
  16. ALPRAZOLAM [Concomitant]

REACTIONS (5)
  - CONFUSIONAL STATE [None]
  - HALLUCINATION [None]
  - PERSECUTORY DELUSION [None]
  - URINARY RETENTION [None]
  - VOMITING [None]
